FAERS Safety Report 22007563 (Version 1)
Quarter: 2023Q1

REPORT INFORMATION
  Report Type: Spontaneous
  Country: US (occurrence: US)
  Receive Date: 20230218
  Receipt Date: 20230218
  Transmission Date: 20230418
  Serious: Yes (Hospitalization, Other)
  Sender: FDA-Public Use
  Company Number: US-AMNEAL PHARMACEUTICALS-2023-AMRX-00526

PATIENT
  Sex: Male
  Weight: 19.2 kg

DRUGS (1)
  1. BACLOFEN [Suspect]
     Active Substance: BACLOFEN
     Indication: Product used for unknown indication
     Dosage: UNK
     Route: 065

REACTIONS (5)
  - Incision site impaired healing [Recovered/Resolved]
  - Implant site pain [Recovered/Resolved]
  - Wound dehiscence [Recovered/Resolved]
  - Pyrexia [Recovered/Resolved]
  - Inflammation [Unknown]
